FAERS Safety Report 13671856 (Version 1)
Quarter: 2017Q2

REPORT INFORMATION
  Report Type: Spontaneous
  Country: US (occurrence: US)
  Receive Date: 20170620
  Receipt Date: 20170620
  Transmission Date: 20170830
  Serious: Yes (Other)
  Sender: FDA-Public Use
  Company Number: US-MALLINCKRODT-T201702578

PATIENT
  Age: 70 Year
  Sex: Male

DRUGS (3)
  1. MORPHINE [Suspect]
     Active Substance: MORPHINE
     Indication: PAIN
     Dosage: 200 MG, Q8H
     Route: 048
  2. METHADOSE [Suspect]
     Active Substance: METHADONE HYDROCHLORIDE
     Indication: PAIN
     Dosage: 20 MG, Q8H
     Route: 048
  3. TAPENTADOL [Suspect]
     Active Substance: TAPENTADOL
     Indication: PAIN
     Dosage: 100 MG, Q6H
     Route: 048

REACTIONS (4)
  - Asterixis [Unknown]
  - Aphasia [Unknown]
  - Seizure [Unknown]
  - Somnolence [Unknown]
